FAERS Safety Report 11709594 (Version 2)
Quarter: 2015Q4

REPORT INFORMATION
  Report Type: Spontaneous
  Country: US (occurrence: US)
  Receive Date: 20151104
  Receipt Date: 20151110
  Transmission Date: 20160304
  Serious: No
  Sender: FDA-Public Use
  Company Number: US-ELI_LILLY_AND_COMPANY-US201108008563

PATIENT
  Age: 66 Year
  Sex: Female

DRUGS (1)
  1. FORTEO [Suspect]
     Active Substance: TERIPARATIDE
     Indication: OSTEOPOROSIS
     Dosage: 20 UG, QD
     Route: 065
     Dates: start: 20110816

REACTIONS (12)
  - Injection site haemorrhage [Unknown]
  - Tremor [Unknown]
  - Back pain [Unknown]
  - Injection site bruising [Not Recovered/Not Resolved]
  - Pain [Unknown]
  - Myalgia [Unknown]
  - Nervousness [Recovering/Resolving]
  - Arthralgia [Unknown]
  - Headache [Unknown]
  - Pain in extremity [Recovering/Resolving]
  - Adverse event [Unknown]
  - Injection site erythema [Unknown]

NARRATIVE: CASE EVENT DATE: 20110816
